FAERS Safety Report 14455728 (Version 1)
Quarter: 2018Q1

REPORT INFORMATION
  Report Type: Spontaneous
  Country: FR (occurrence: FR)
  Receive Date: 20180130
  Receipt Date: 20180130
  Transmission Date: 20180509
  Serious: Yes (Hospitalization)
  Sender: FDA-Public Use
  Company Number: FR-CIPLA LTD.-2018FR01826

PATIENT

DRUGS (4)
  1. AMLODIPINE [Suspect]
     Active Substance: AMLODIPINE BESYLATE
     Indication: HYPERTENSION
     Dosage: 5 MG, UNK
     Route: 048
     Dates: end: 20171016
  2. ALFUZOSIN [Interacting]
     Active Substance: ALFUZOSIN
     Dosage: 10 MG, UNK
     Route: 048
  3. PERINDOPRIL ERBUMINE. [Interacting]
     Active Substance: PERINDOPRIL ERBUMINE
     Dosage: 2 MG, UNK
     Route: 048
     Dates: end: 20171016
  4. LASILIX FAIBLE [Interacting]
     Active Substance: FUROSEMIDE
     Indication: HYPERTENSION
     Dosage: 20 MG, UNK
     Route: 048
     Dates: end: 20171016

REACTIONS (4)
  - Drug interaction [Recovered/Resolved]
  - Orthostatic hypotension [Recovered/Resolved]
  - Fall [Recovered/Resolved with Sequelae]
  - Acute kidney injury [Recovering/Resolving]

NARRATIVE: CASE EVENT DATE: 20171016
